FAERS Safety Report 9871513 (Version 1)
Quarter: 2014Q1

REPORT INFORMATION
  Report Type: Report from Study
  Country: US (occurrence: US)
  Receive Date: 20140205
  Receipt Date: 20140205
  Transmission Date: 20141002
  Serious: No
  Sender: FDA-Public Use
  Company Number: US-ALEXION-A201400154

PATIENT
  Age: 6 Year
  Sex: Male

DRUGS (2)
  1. SOLIRIS [Suspect]
     Indication: HAEMOLYTIC URAEMIC SYNDROME
     Dosage: 600 MG, Q2W
     Route: 042
     Dates: start: 20120619
  2. PREDNISONE [Concomitant]
     Indication: PROPHYLAXIS
     Dosage: 14 MG, QOD
     Route: 048
     Dates: start: 20130131

REACTIONS (2)
  - BK virus infection [Not Recovered/Not Resolved]
  - Renal function test abnormal [Not Recovered/Not Resolved]
